FAERS Safety Report 8646358 (Version 4)
Quarter: 2013Q2

REPORT INFORMATION
  Report Type: Spontaneous
  Country: DE (occurrence: DE)
  Receive Date: 20120702
  Receipt Date: 20130530
  Transmission Date: 20140414
  Serious: Yes (Hospitalization)
  Sender: FDA-Public Use
  Company Number: DE-TEVA-344252GER

PATIENT
  Sex: Female

DRUGS (13)
  1. COPAXONE [Suspect]
     Indication: MULTIPLE SCLEROSIS
     Dosage: 20 MILLIGRAM DAILY;
     Route: 058
     Dates: start: 20110501, end: 20120704
  2. METOPROLOL SUCCINATE [Concomitant]
     Dosage: 95 MILLIGRAM DAILY;
  3. HCT [Concomitant]
     Dosage: 25 MILLIGRAM DAILY;
  4. AMLODIPINE [Concomitant]
     Dosage: 5 MILLIGRAM DAILY;
  5. RAMIPRIL [Concomitant]
     Dosage: 5 MILLIGRAM DAILY;
  6. PRAMIPEXOLE [Concomitant]
     Dosage: .54 MILLIGRAM DAILY; 0.18MG IN THE MORNING, 0.36MG IN THE EVENING
  7. PRAMIPEXOLE [Concomitant]
     Dosage: .54 MILLIGRAM DAILY; 0.18MG; 0-1-2
  8. GABAPENTIN [Concomitant]
     Dosage: 1200 MILLIGRAM DAILY;
  9. TRAMADOL [Concomitant]
     Dosage: 300 MILLIGRAM DAILY;
  10. TAMSULOSIN [Concomitant]
     Dosage: .4 MILLIGRAM DAILY;
  11. METAMIZOLE [Concomitant]
     Dosage: UP TO 4 X DAILY
  12. L-THYROXIN [Concomitant]
  13. METOPROLOL COMP. [Concomitant]
     Dosage: 92/12.5

REACTIONS (5)
  - Goitre [Recovered/Resolved]
  - Thyroid disorder [Unknown]
  - Dyspnoea [Recovered/Resolved]
  - Post procedural complication [Recovering/Resolving]
  - Impaired healing [Unknown]
